FAERS Safety Report 4965520-X (Version None)
Quarter: 2006Q2

REPORT INFORMATION
  Report Type: 
  Country: None (occurrence: None)
  Receive Date: 20060406
  Receipt Date: 20021014
  Transmission Date: 20061013
  Serious: Yes (Hospitalization, Disabling, Other)
  Sender: FDA-Public Use
  Company Number: AU-MERCK-0210AUS00115

PATIENT
  Age: 73 Year
  Sex: Female

DRUGS (7)
  1. ZOCOR [Suspect]
     Indication: HYPERCHOLESTEROLAEMIA
     Route: 065
  2. GEMFIBROZIL [Suspect]
     Route: 065
  3. RAMIPRIL [Concomitant]
     Route: 065
  4. DIURIL [Concomitant]
     Route: 065
  5. DILTIAZEM HYDROCHLORIDE [Suspect]
     Route: 065
  6. ASPIRIN [Concomitant]
     Route: 065
  7. ROXITHROMYCIN [Suspect]
     Indication: UPPER RESPIRATORY TRACT INFECTION
     Route: 065

REACTIONS (7)
  - BLOOD CREATINE PHOSPHOKINASE INCREASED [None]
  - DRUG INTERACTION [None]
  - MUSCULAR WEAKNESS [None]
  - MYALGIA [None]
  - MYOGLOBINURIA [None]
  - MYOPATHY [None]
  - RHABDOMYOLYSIS [None]
